FAERS Safety Report 9535907 (Version 3)
Quarter: 2013Q3

REPORT INFORMATION
  Report Type: Spontaneous
  Country: US (occurrence: US)
  Receive Date: 20130919
  Receipt Date: 20130925
  Transmission Date: 20140515
  Serious: Yes (Other)
  Sender: FDA-Public Use
  Company Number: US-ROCHE-1271160

PATIENT
  Age: 59 Year
  Sex: Female
  Weight: 64.47 kg

DRUGS (7)
  1. XOLAIR [Suspect]
     Indication: ASTHMA
     Route: 058
     Dates: start: 20130904, end: 20130904
  2. ZYRTEC [Concomitant]
     Route: 065
  3. LOVASTATIN OR PLACEBO [Concomitant]
     Route: 065
  4. ADVAIR DISKUS [Concomitant]
     Dosage: AER500/50 DAILY TWICE
     Route: 065
  5. BEPREVE [Concomitant]
     Dosage: TWICE DAILY
     Route: 065
  6. HYDROCHLOROTHIAZIDE [Concomitant]
     Route: 065
  7. MONTELUKAST [Concomitant]
     Dosage: BED TIME
     Route: 065

REACTIONS (5)
  - Hypersensitivity [Recovered/Resolved]
  - Hypertension [Recovered/Resolved]
  - Cold sweat [Recovered/Resolved]
  - Throat irritation [Recovered/Resolved]
  - Dizziness [Recovered/Resolved]
